FAERS Safety Report 8816553 (Version 1)
Quarter: 2012Q4

REPORT INFORMATION
  Report Type: Spontaneous
  Country: US (occurrence: None)
  Receive Date: 20121001
  Receipt Date: 20121001
  Transmission Date: 20130627
  Serious: Yes (Hospitalization)
  Sender: FDA-Public Use
  Company Number: None

PATIENT
  Age: 81 Year
  Sex: Male

DRUGS (1)
  1. ZYTIGA [Suspect]
     Indication: CANCER
     Dosage: 1000 mg qhs po
     Dates: start: 20120501

REACTIONS (2)
  - Palpitations [None]
  - Feeling abnormal [None]
